FAERS Safety Report 7953663-8 (Version None)
Quarter: 2011Q4

REPORT INFORMATION
  Report Type: 
  Country: None (occurrence: None)
  Receive Date: 20111202
  Receipt Date: 20111123
  Transmission Date: 20120403
  Serious: Yes (Hospitalization)
  Sender: FDA-Public Use
  Company Number: US-US-EMD SERONO, INC.-7096243

PATIENT
  Sex: Male

DRUGS (3)
  1. NON-STEROIDAL ANTI-INFLAMMATORY [Suspect]
  2. EGRIFTA [Suspect]
     Indication: LIPODYSTROPHY ACQUIRED
     Route: 058
     Dates: start: 20110101, end: 20111101
  3. ANTI-RETROVIRAL [Concomitant]
     Indication: HIV INFECTION
     Dates: end: 20111101

REACTIONS (4)
  - RENAL TUBULAR NECROSIS [None]
  - ABDOMINAL PAIN [None]
  - HYPOKALAEMIA [None]
  - RENAL FAILURE ACUTE [None]
